FAERS Safety Report 19319106 (Version 1)
Quarter: 2021Q2

REPORT INFORMATION
  Report Type: Spontaneous
  Country: US (occurrence: US)
  Receive Date: 20210528
  Receipt Date: 20210528
  Transmission Date: 20210717
  Serious: Yes (Hospitalization, Other)
  Sender: FDA-Public Use
  Company Number: US-HIKMA PHARMACEUTICALS USA INC.-US-H14001-21-54507

PATIENT
  Age: 71 Year
  Sex: Male

DRUGS (2)
  1. TOCILIZUMAB. [Suspect]
     Active Substance: TOCILIZUMAB
     Indication: COVID-19 PNEUMONIA
     Dosage: UNKNOWN
     Route: 065
  2. PREDNISONE. [Suspect]
     Active Substance: PREDNISONE
     Indication: COVID-19 PNEUMONIA
     Dosage: UNKNOWN
     Route: 065

REACTIONS (3)
  - Atrioventricular block complete [Recovering/Resolving]
  - Endocarditis [Recovering/Resolving]
  - Cardiac valve abscess [Recovering/Resolving]
